FAERS Safety Report 7305986-3 (Version None)
Quarter: 2011Q1

REPORT INFORMATION
  Report Type: 
  Country: None (occurrence: None)
  Receive Date: 20110210
  Receipt Date: 20110208
  Transmission Date: 20110831
  Serious: Yes (Hospitalization)
  Sender: FDA-Public Use
  Company Number: 2010SP057765

PATIENT
  Age: 41 Year
  Sex: Female
  Weight: 48 kg

DRUGS (10)
  1. ESTRANA [Concomitant]
  2. PROGESTERONE [Concomitant]
  3. GANIREST (GANIRELIX /01453701/) [Suspect]
     Indication: PREVENTION OF PREMATURE OVULATION
     Dosage: 0.25 MG;ONCE;SC ; 0.25 MG;ONCE;SC
     Route: 058
     Dates: start: 20100621, end: 20100621
  4. GANIREST (GANIRELIX /01453701/) [Suspect]
     Indication: PREVENTION OF PREMATURE OVULATION
     Dosage: 0.25 MG;ONCE;SC ; 0.25 MG;ONCE;SC
     Route: 058
     Dates: start: 20100623, end: 20100623
  5. NORGESTREL AND ETHINYL ESTRADIOL [Concomitant]
  6. FOLLISTIM [Suspect]
     Indication: IN VITRO FERTILISATION
     Dosage: 150 IU;SC ; 200 IU;SC
     Route: 058
     Dates: start: 20100623, end: 20100623
  7. FOLLISTIM [Suspect]
     Indication: IN VITRO FERTILISATION
     Dosage: 150 IU;SC ; 200 IU;SC
     Route: 058
     Dates: start: 20100617, end: 20100622
  8. HUMAN CHORIONIC GONADOTROPHIN (OTHER MFR) (CHORIONIC GONADOTROPHIN) [Suspect]
     Indication: OVULATION INDUCTION
     Dosage: 10000 IU
     Dates: start: 20100624, end: 20100624
  9. PROGE DEPOT [Concomitant]
  10. OVAHORMON DEPOT [Concomitant]

REACTIONS (3)
  - OVARIAN HYPERSTIMULATION SYNDROME [None]
  - ABORTION MISSED [None]
  - DYSPNOEA [None]
